FAERS Safety Report 6912290-1 (Version None)
Quarter: 2010Q3

REPORT INFORMATION
  Report Type: 
  Country: None (occurrence: None)
  Receive Date: 20100806
  Receipt Date: 20080523
  Transmission Date: 20110219
  Serious: No
  Sender: FDA-Public Use
  Company Number: US-PFIZER INC-2008022986

PATIENT
  Sex: Female
  Weight: 54.545 kg

DRUGS (4)
  1. DETROL LA [Suspect]
     Indication: POLLAKIURIA
  2. LIPITOR [Concomitant]
  3. GLIPIZIDE [Concomitant]
     Indication: DIABETES MELLITUS
  4. METFORMIN HCL [Concomitant]
     Indication: DIABETES MELLITUS

REACTIONS (2)
  - DRUG INEFFECTIVE [None]
  - POLLAKIURIA [None]
